FAERS Safety Report 10368067 (Version 1)
Quarter: 2014Q1

REPORT INFORMATION
  Report Type: Spontaneous
  Country: US (occurrence: None)
  Receive Date: 20140306
  Receipt Date: 20140306
  Transmission Date: 20141002
  Serious: Yes (Hospitalization, Other)
  Sender: FDA-Public Use
  Company Number: 163-21880-13082327

PATIENT
  Age: 71 Year
  Sex: Male

DRUGS (4)
  1. REVLIMID (LENALIDOMIDE) (5 MILLIGRAM, CAPSULES) [Suspect]
     Indication: CHRONIC LYMPHOCYTIC LEUKAEMIA
     Dosage: 5 MG, 21 IN 21 D, PO
     Route: 048
     Dates: start: 20130730
  2. LEVOTHYROXINE SODIUM (LEVOTHYROXINE SODIUM) [Concomitant]
  3. PROMETHAZINE HCL (PROMETHAZINE HYDROCHLORIDE) [Concomitant]
  4. MIDODRINE HCL (MIDODRINE HYDROCHLORIDE) [Concomitant]

REACTIONS (1)
  - Pneumonia [None]
